FAERS Safety Report 17908176 (Version 2)
Quarter: 2020Q3

REPORT INFORMATION
  Report Type: Spontaneous
  Country: BR (occurrence: BR)
  Receive Date: 20200617
  Receipt Date: 20200703
  Transmission Date: 20201103
  Serious: Yes (Disabling)
  Sender: FDA-Public Use
  Company Number: NVSC2020BR167382

PATIENT
  Sex: Female
  Weight: 43 kg

DRUGS (2)
  1. STALEVO [Suspect]
     Active Substance: CARBIDOPA\ENTACAPONE\LEVODOPA
     Dosage: 1 DF, QD (FOR MORE THAN 10 YRS) (50 MG+12.5 MG+200 MG)
     Route: 065
  2. STALEVO [Suspect]
     Active Substance: CARBIDOPA\ENTACAPONE\LEVODOPA
     Indication: PARKINSON^S DISEASE
     Dosage: 0.5 DF (50 MG+12.5 MG+200 MG), BID
     Route: 065

REACTIONS (7)
  - Mobility decreased [Unknown]
  - Wrong technique in product usage process [Recovered/Resolved]
  - Tremor [Unknown]
  - Hypersensitivity [Unknown]
  - Muscle injury [Unknown]
  - Weight decreased [Unknown]
  - Product prescribing error [Recovered/Resolved]
